FAERS Safety Report 19950447 (Version 1)
Quarter: 2021Q4

REPORT INFORMATION
  Report Type: Spontaneous
  Country: US (occurrence: US)
  Receive Date: 20211011
  Receipt Date: 20211011
  Transmission Date: 20220303
  Serious: No
  Sender: FDA-Public Use
  Company Number: None

PATIENT
  Age: 81 Year
  Sex: Female

DRUGS (1)
  1. AMBRISENTAN [Suspect]
     Active Substance: AMBRISENTAN
     Route: 048
     Dates: start: 202108

REACTIONS (2)
  - Cardiac failure [None]
  - Pulmonary oedema [None]

NARRATIVE: CASE EVENT DATE: 20211006
